FAERS Safety Report 13561769 (Version 1)
Quarter: 2017Q2

REPORT INFORMATION
  Report Type: Spontaneous
  Country: IT (occurrence: IT)
  Receive Date: 20170518
  Receipt Date: 20170518
  Transmission Date: 20170830
  Serious: Yes (Hospitalization)
  Sender: FDA-Public Use
  Company Number: IT-ELI_LILLY_AND_COMPANY-IT201705004372

PATIENT
  Age: 14 Year
  Sex: Female
  Weight: 71 kg

DRUGS (3)
  1. TRESIBA [Suspect]
     Active Substance: INSULIN DEGLUDEC
     Indication: TYPE 1 DIABETES MELLITUS
     Dosage: 36 IU, DAILY, AT DINNER
     Route: 058
     Dates: start: 20170207, end: 20170207
  2. HUMALOG [Suspect]
     Active Substance: INSULIN LISPRO
     Indication: TYPE 1 DIABETES MELLITUS
     Dosage: 7 IU, DAILY, AT BREAKFAST
     Route: 058
     Dates: start: 20170207, end: 20170207
  3. HUMALOG [Suspect]
     Active Substance: INSULIN LISPRO
     Dosage: 9 IU, DAILY, AT LUNCH
     Route: 058
     Dates: start: 20170207, end: 20170207

REACTIONS (5)
  - Fall [Recovering/Resolving]
  - Tremor [Recovering/Resolving]
  - Hypoglycaemia [Recovering/Resolving]
  - Confusional state [Recovering/Resolving]
  - Head injury [Recovering/Resolving]

NARRATIVE: CASE EVENT DATE: 20170207
